FAERS Safety Report 13084508 (Version 1)
Quarter: 2017Q1

REPORT INFORMATION
  Report Type: Report from Study
  Country: TN (occurrence: TN)
  Receive Date: 20170104
  Receipt Date: 20170104
  Transmission Date: 20170428
  Serious: Yes (Other)
  Sender: FDA-Public Use
  Company Number: TN-EMD SERONO-8121461

PATIENT
  Age: 51 Year
  Sex: Female

DRUGS (4)
  1. VITAMIN E                          /00110501/ [Concomitant]
     Active Substance: TOCOPHEROL
     Indication: NERVOUS SYSTEM DISORDER
     Dates: start: 201403
  2. REBIF [Suspect]
     Active Substance: INTERFERON BETA-1A
     Indication: MULTIPLE SCLEROSIS
     Route: 058
     Dates: start: 20141219, end: 201610
  3. TRI B                              /01251201/ [Concomitant]
     Indication: NERVOUS SYSTEM DISORDER
     Dates: start: 201403
  4. LYRICA [Concomitant]
     Active Substance: PREGABALIN
     Indication: NEURALGIA
     Dates: start: 201403

REACTIONS (3)
  - Delirium [Recovered/Resolved]
  - Abasia [Not Recovered/Not Resolved]
  - Pyrexia [Recovered/Resolved]

NARRATIVE: CASE EVENT DATE: 201603
